FAERS Safety Report 4682064-3 (Version None)
Quarter: 2005Q2

REPORT INFORMATION
  Report Type: 
  Country: None (occurrence: None)
  Receive Date: 20050602
  Receipt Date: 20040506
  Transmission Date: 20051028
  Serious: Yes (Other)
  Sender: FDA-Public Use
  Company Number: 2004US000523

PATIENT
  Age: 64 Year
  Sex: Male

DRUGS (8)
  1. PROGRAF [Suspect]
     Indication: LIVER TRANSPLANT
     Dosage: 2.00 MG, ORAL
     Route: 048
  2. METHYLPREDNISOLONE [Concomitant]
  3. FAMOTIDINE [Concomitant]
  4. ACYCLOVIR [Concomitant]
  5. TMP-SMX (SULFAMETHOXAZOLE, TRIMETHOPRIM) [Concomitant]
  6. PIPERACILLIN/AZO (PIPERACILLIN SODIUM, TAZOBACTAM SODIUM) [Concomitant]
  7. DILAUDID [Concomitant]
  8. ZOFRAN [Concomitant]

REACTIONS (1)
  - CONVULSION [None]
